FAERS Safety Report 9925181 (Version 1)
Quarter: 2014Q1

REPORT INFORMATION
  Report Type: Report from Study
  Country: NL (occurrence: NL)
  Receive Date: 20140226
  Receipt Date: 20140226
  Transmission Date: 20141002
  Serious: Yes (Hospitalization, Other)
  Sender: FDA-Public Use
  Company Number: NL-ABBVIE-11P-114-0846471-00

PATIENT
  Age: 37 Year
  Sex: Male
  Weight: 74.5 kg

DRUGS (4)
  1. HUMIRA [Suspect]
     Indication: CROHN^S DISEASE
     Route: 058
     Dates: start: 20110221
  2. HUMIRA [Suspect]
     Route: 058
  3. PREDNISOLON [Suspect]
     Indication: CROHN^S DISEASE
     Route: 048
     Dates: start: 1991
  4. PURINETHOL [Concomitant]
     Indication: CROHN^S DISEASE
     Dosage: 2 TABLETS EVERY THREE DAYS
     Route: 048

REACTIONS (8)
  - Suicidal ideation [Recovered/Resolved]
  - Depression [Recovered/Resolved]
  - Anxiety [Recovered/Resolved]
  - Insomnia [Recovered/Resolved]
  - Restlessness [Recovered/Resolved]
  - Arthralgia [Recovered/Resolved]
  - Alopecia [Recovered/Resolved]
  - Drug ineffective [Recovered/Resolved]
